FAERS Safety Report 5315890-8 (Version None)
Quarter: 2007Q2

REPORT INFORMATION
  Report Type: 
  Country: None (occurrence: None)
  Receive Date: 20070503
  Receipt Date: 20070430
  Transmission Date: 20071010
  Serious: Yes (Other)
  Sender: FDA-Public Use
  Company Number: US-GENENTECH-240316

PATIENT
  Sex: Female

DRUGS (9)
  1. LUCENTIS [Suspect]
     Indication: MACULAR DEGENERATION
     Dosage: UNK, 1/MONTH
     Route: 031
     Dates: start: 20070328
  2. VYTORIN [Concomitant]
     Indication: BLOOD CHOLESTEROL
  3. PAIN MEDICATION [Concomitant]
     Indication: ARTHRITIS
  4. MEDICATION (UNK INGREDIENT) [Concomitant]
     Indication: ARTHRITIS
     Dosage: 60 MG, UNK
  5. CALCIUM CHLORIDE [Concomitant]
     Dosage: 3 TABLET, QD
  6. MELOXICAM [Concomitant]
     Indication: ARTHRITIS
     Dosage: 15 MG, UNK
  7. GLUCOSAMINE/CHONDROITIN/MSM [Concomitant]
     Indication: ARTHRITIS
  8. OCUVITE [Concomitant]
     Indication: DRUG USE FOR UNKNOWN INDICATION
  9. OMEPRAZOLE [Concomitant]
     Indication: GASTROOESOPHAGEAL REFLUX DISEASE
     Dosage: 20 MG, UNK

REACTIONS (1)
  - HYPERTENSION [None]
